FAERS Safety Report 8822646 (Version 2)
Quarter: 2014Q2

REPORT INFORMATION
  Report Type: Spontaneous
  Country: JP (occurrence: JP)
  Receive Date: 20121003
  Receipt Date: 20130725
  Transmission Date: 20141212
  Serious: Yes (Other)
  Sender: FDA-Public Use
  Company Number: JP-009507513-1209JPN007363

PATIENT
  Age: 77 Year
  Sex: Female

DRUGS (6)
  1. ELAVIL [Suspect]
     Dosage: 20 MG, QD
     Route: 048
     Dates: end: 20120907
  2. RIMATIL [Concomitant]
     Dosage: 300 MG, QD
     Route: 048
  3. ALFAROL [Concomitant]
     Dosage: 3 MICROGRAM, QD
     Route: 048
  4. PROMAC (POLAPREZINC) [Concomitant]
     Dosage: 150 MG, QD
     Route: 048
  5. BONALON [Concomitant]
     Dosage: 35 MG, QW
     Route: 048
  6. ARASENA-A [Concomitant]
     Dosage: 600 MG, QD
     Route: 041

REACTIONS (4)
  - Tremor [Not Recovered/Not Resolved]
  - Dysarthria [Not Recovered/Not Resolved]
  - Nausea [Not Recovered/Not Resolved]
  - Vomiting [Not Recovered/Not Resolved]
